FAERS Safety Report 17230127 (Version 2)
Quarter: 2020Q1

REPORT INFORMATION
  Report Type: Spontaneous
  Country: JP (occurrence: JP)
  Receive Date: 20200103
  Receipt Date: 20200113
  Transmission Date: 20200409
  Serious: Yes (Hospitalization, Other)
  Sender: FDA-Public Use
  Company Number: JP-PFIZER INC-2019560773

PATIENT
  Age: 53 Year
  Sex: Female
  Weight: 46.9 kg

DRUGS (5)
  1. METHOTREXATE SODIUM. [Suspect]
     Active Substance: METHOTREXATE SODIUM
     Indication: RHEUMATOID ARTHRITIS
     Dosage: UNK
  2. METHYLPREDNISOLONE. [Concomitant]
     Active Substance: METHYLPREDNISOLONE
     Indication: RHEUMATOID ARTHRITIS
     Dosage: UNK
  3. AURANOFIN [Suspect]
     Active Substance: AURANOFIN
     Dosage: UNK
  4. TOMIRON [Suspect]
     Active Substance: CEFTERAM PIVOXIL
     Dosage: UNK
  5. BACACIL [Suspect]
     Active Substance: BACAMPICILLIN HYDROCHLORIDE
     Dosage: UNK

REACTIONS (1)
  - Autoimmune haemolytic anaemia [Recovering/Resolving]
